FAERS Safety Report 23759922 (Version 1)
Quarter: 2024Q2

REPORT INFORMATION
  Report Type: Spontaneous
  Country: CN (occurrence: None)
  Receive Date: 20240419
  Receipt Date: 20240419
  Transmission Date: 20240717
  Serious: Yes (Other)
  Sender: FDA-Public Use
  Company Number: CN-ROCHE-3544274

PATIENT
  Age: 37 Year
  Sex: Female

DRUGS (14)
  1. AVASTIN [Suspect]
     Active Substance: BEVACIZUMAB
     Indication: Adenocarcinoma of colon
     Dosage: FOLFIRI + BEVACIZUMAB FOR 5 CYCLES
     Route: 065
     Dates: start: 202003, end: 202007
  2. AVASTIN [Suspect]
     Active Substance: BEVACIZUMAB
     Dosage: FOLFIRI + BEVACIZUMAB FOR THE 6TH TO 12TH CYCLES
     Route: 065
     Dates: start: 202008, end: 202101
  3. AVASTIN [Suspect]
     Active Substance: BEVACIZUMAB
     Dosage: RALTITREXED + BEVACIZUMAB + OXALIPLATIN
     Route: 065
     Dates: start: 202104
  4. AVASTIN [Suspect]
     Active Substance: BEVACIZUMAB
     Dosage: TAS-102 + BEVACIZUMAB
     Route: 065
     Dates: start: 202205
  5. IRINOTECAN [Concomitant]
     Active Substance: IRINOTECAN
     Indication: Adenocarcinoma of colon
     Dosage: FOLFIRI + BEVACIZUMAB FOR 5 CYCLES
     Dates: start: 202003, end: 202007
  6. IRINOTECAN [Concomitant]
     Active Substance: IRINOTECAN
     Dosage: FOLFIRI + BEVACIZUMAB FOR THE 6TH TO 12TH CYCLES
     Dates: start: 202008, end: 202101
  7. LEUCOVORIN CALCIUM [Concomitant]
     Active Substance: LEUCOVORIN CALCIUM
     Indication: Adenocarcinoma of colon
     Dosage: FOLFIRI + BEVACIZUMAB FOR 5 CYCLES
     Dates: start: 202003, end: 202007
  8. LEUCOVORIN CALCIUM [Concomitant]
     Active Substance: LEUCOVORIN CALCIUM
     Dosage: FOLFIRI + BEVACIZUMAB FOR THE 6TH TO 12TH CYCLES
     Dates: start: 202008, end: 202101
  9. FLUOROURACIL [Concomitant]
     Active Substance: FLUOROURACIL
     Indication: Adenocarcinoma of colon
     Dosage: FOLFIRI + BEVACIZUMAB FOR 5 CYCLES
     Dates: start: 202003, end: 202007
  10. FLUOROURACIL [Concomitant]
     Active Substance: FLUOROURACIL
     Dosage: FOLFIRI + BEVACIZUMAB FOR THE 6TH TO 12TH CYCLES
     Dates: start: 202008, end: 202101
  11. RALTITREXED [Concomitant]
     Active Substance: RALTITREXED
     Indication: Adenocarcinoma of colon
     Dosage: RALTITREXED + BEVACIZUMAB + OXALIPLATIN
     Dates: start: 202104
  12. OXALIPLATIN [Concomitant]
     Active Substance: OXALIPLATIN
     Indication: Adenocarcinoma of colon
     Dosage: RALTITREXED + BEVACIZUMAB + OXALIPLATIN
     Dates: start: 202104
  13. FRUQUINTINIB [Concomitant]
     Active Substance: FRUQUINTINIB
     Indication: Adenocarcinoma of colon
     Dates: start: 202105
  14. TIPIRACIL HYDROCHLORIDE\TRIFLURIDINE [Concomitant]
     Active Substance: TIPIRACIL HYDROCHLORIDE\TRIFLURIDINE
     Indication: Adenocarcinoma of colon
     Dosage: TAS-102 + BEVACIZUMAB, D1-5, ONE CYCLE FOR 2 WEEKS
     Dates: start: 202205

REACTIONS (7)
  - Metastatic neoplasm [Unknown]
  - Hypersensitivity [Unknown]
  - Disease progression [Unknown]
  - Haemoglobin decreased [Unknown]
  - Platelet count decreased [Unknown]
  - White blood cell count decreased [Unknown]
  - Neutrophil count decreased [Unknown]

NARRATIVE: CASE EVENT DATE: 20210301
